FAERS Safety Report 5251648-6 (Version None)
Quarter: 2007Q1

REPORT INFORMATION
  Report Type: 
  Country: None (occurrence: None)
  Receive Date: 20070228
  Receipt Date: 20061012
  Transmission Date: 20070707
  Serious: No
  Sender: FDA-Public Use
  Company Number: US-GLAXOSMITHKLINE-A0622115A

PATIENT
  Age: 14 Year
  Sex: Female

DRUGS (2)
  1. LAMICTAL [Suspect]
     Indication: BIPOLAR DISORDER
     Route: 048
     Dates: start: 20060901, end: 20060928
  2. FLUOXETINE HCL [Concomitant]

REACTIONS (3)
  - HYPOAESTHESIA ORAL [None]
  - LYMPHADENOPATHY [None]
  - RASH GENERALISED [None]
